FAERS Safety Report 18777816 (Version 2)
Quarter: 2021Q1

REPORT INFORMATION
  Report Type: Spontaneous
  Country: US (occurrence: US)
  Receive Date: 20210122
  Receipt Date: 20210122
  Transmission Date: 20210419
  Serious: No
  Sender: FDA-Public Use
  Company Number: 2020SGN03978

PATIENT
  Sex: Male

DRUGS (2)
  1. XELODA [Suspect]
     Active Substance: CAPECITABINE
     Indication: BREAST CANCER MALE
  2. TUKYSA [Suspect]
     Active Substance: TUCATINIB
     Indication: BREAST CANCER MALE

REACTIONS (6)
  - Stomatitis [Recovering/Resolving]
  - Hand deformity [Unknown]
  - Disease progression [Unknown]
  - Product dose omission issue [Unknown]
  - Drug ineffective [Unknown]
  - Haemoglobin decreased [Unknown]
